FAERS Safety Report 6565788-2 (Version None)
Quarter: 2010Q1

REPORT INFORMATION
  Report Type: 
  Country: None (occurrence: None)
  Receive Date: 20100126
  Receipt Date: 20100114
  Transmission Date: 20100710
  Serious: Yes (Other)
  Sender: FDA-Public Use
  Company Number: 231252K08USA

PATIENT
  Age: 21 Year
  Sex: Female

DRUGS (11)
  1. REBIF [Suspect]
     Indication: MULTIPLE SCLEROSIS
     Dosage: 1 DOSAGE FORMS
     Dates: start: 20041108, end: 20050801
  2. REBIF [Suspect]
     Indication: MULTIPLE SCLEROSIS
     Dosage: 1 DOSAGE FORMS
     Dates: start: 20081101, end: 20081101
  3. REBIF [Suspect]
     Indication: MULTIPLE SCLEROSIS
     Dosage: 1 DOSAGE FORMS
     Dates: start: 20060501
  4. REBIF [Suspect]
     Indication: MULTIPLE SCLEROSIS
     Dosage: 1 DOSAGE FORMS
     Dates: start: 20070501
  5. REBIF [Suspect]
     Indication: MULTIPLE SCLEROSIS
     Dosage: 1 DOSAGE FORMS
     Dates: start: 20091201
  6. ABILIFY [Suspect]
     Indication: BIPOLAR DISORDER
     Dates: end: 20080301
  7. ECSTASY (ALL OTHER THERAPEUTIC PRODUCTS) [Suspect]
     Dates: start: 20080101, end: 20080101
  8. ALCOHOL (ETHANOL) [Suspect]
     Dates: end: 20080301
  9. PERCOCET [Suspect]
     Dates: start: 20080101, end: 20080101
  10. TYLENOL [Concomitant]
  11. MITOXANTRONE (MITOXANTRONE) [Concomitant]

REACTIONS (13)
  - AFFECT LABILITY [None]
  - AMNESIA [None]
  - ANTEPARTUM HAEMORRHAGE [None]
  - BALANCE DISORDER [None]
  - CHLAMYDIAL INFECTION [None]
  - DEPRESSION [None]
  - DRUG EXPOSURE DURING PREGNANCY [None]
  - FALL [None]
  - HYPOAESTHESIA [None]
  - LOSS OF CONSCIOUSNESS [None]
  - PREGNANCY [None]
  - RADICULAR PAIN [None]
  - STILLBIRTH [None]
